FAERS Safety Report 9162425 (Version 1)
Quarter: 2013Q1

REPORT INFORMATION
  Report Type: Spontaneous
  Country: CN (occurrence: CN)
  Receive Date: 20130314
  Receipt Date: 20130314
  Transmission Date: 20140127
  Serious: Yes (Congenital Anomaly)
  Sender: FDA-Public Use
  Company Number: CN-COVIDIEN/TYCO HEALTHCARE/MALLINCKRODT-T201301108

PATIENT
  Age: 4 Day
  Sex: 0

DRUGS (1)
  1. SODIUM IODIDE (I 131) [Suspect]
     Dosage: UNK

REACTIONS (3)
  - Thyroid malformation [Unknown]
  - Foetal exposure during pregnancy [Unknown]
  - Exposure during breast feeding [Unknown]
